FAERS Safety Report 13472104 (Version 1)
Quarter: 2017Q2

REPORT INFORMATION
  Report Type: Spontaneous
  Country: US (occurrence: US)
  Receive Date: 20170422
  Receipt Date: 20170422
  Transmission Date: 20170830
  Serious: Yes (Hospitalization, Other)
  Sender: FDA-Public Use
  Company Number: None

PATIENT
  Age: 81 Year
  Weight: 69.75 kg

DRUGS (10)
  1. QUETIAPINE. [Suspect]
     Active Substance: QUETIAPINE
     Indication: RESTLESSNESS
     Dosage: ?          QUANTITY:1 TABLET(S);OTHER FREQUENCY:1 DAILY IN AFTERNO;?
     Route: 048
     Dates: start: 20170415, end: 20170415
  2. AMLODIPINE [Concomitant]
     Active Substance: AMLODIPINE BESYLATE
  3. COQ10 [Concomitant]
     Active Substance: UBIDECARENONE
  4. WALKER SEAT [Concomitant]
     Active Substance: DEVICE
  5. MIN TRAN [Concomitant]
  6. CARDIO PLUS [Concomitant]
  7. MULTI-VITAMIN [Concomitant]
     Active Substance: .ALPHA.-TOCOPHEROL ACETATE, DL-\ASCORBIC ACID\CYANOCOBALAMIN\FLUORIDE ION\FOLIC ACID\NIACIN\PYRIDOXINE\RIBOFLAVIN\THIAMINE\VITAMIN A\VITAMIN D
  8. D [Concomitant]
  9. QUETIAPINE. [Suspect]
     Active Substance: QUETIAPINE
     Indication: SLEEP DISORDER
     Dosage: ?          QUANTITY:1 TABLET(S);OTHER FREQUENCY:1 DAILY IN AFTERNO;?
     Route: 048
     Dates: start: 20170415, end: 20170415
  10. RED RICE YEAST [Concomitant]
     Active Substance: DIETARY SUPPLEMENT

REACTIONS (1)
  - Unresponsive to stimuli [None]

NARRATIVE: CASE EVENT DATE: 20170415
